FAERS Safety Report 9092469 (Version 1)
Quarter: 2013Q1

REPORT INFORMATION
  Report Type: Spontaneous
  Country: FR (occurrence: FR)
  Receive Date: 20130131
  Receipt Date: 20130131
  Transmission Date: 20140127
  Serious: Yes (Other)
  Sender: FDA-Public Use
  Company Number: FR-ELI_LILLY_AND_COMPANY-FR201301008777

PATIENT
  Age: 38 Year
  Sex: Female
  Weight: 56 kg

DRUGS (6)
  1. PROZAC [Suspect]
     Dosage: 20 MG, UNKNOWN
     Route: 048
     Dates: end: 20111118
  2. ARANESP [Concomitant]
     Dosage: 0.06 MG, UNKNOWN
  3. FERINJECT [Concomitant]
     Dosage: 500 MG, UNKNOWN
  4. GUTRON [Concomitant]
     Dosage: 2.5 MG, UNKNOWN
     Dates: end: 20111118
  5. TAREG [Concomitant]
     Dosage: 40 MG, UNKNOWN
     Dates: end: 20111118
  6. SPECIAFOLDINE [Concomitant]
     Dosage: 0.4 MG, UNKNOWN
     Dates: end: 20120222

REACTIONS (2)
  - Diabetes mellitus inadequate control [Recovered/Resolved]
  - Maternal exposure timing unspecified [Recovered/Resolved]
